FAERS Safety Report 19553630 (Version 1)
Quarter: 2021Q3

REPORT INFORMATION
  Report Type: Spontaneous
  Country: US (occurrence: US)
  Receive Date: 20210714
  Receipt Date: 20210714
  Transmission Date: 20211014
  Serious: Yes (Other)
  Sender: FDA-Public Use
  Company Number: US-PFIZER INC-2021828559

PATIENT
  Age: 22 Year
  Sex: Female
  Weight: 83 kg

DRUGS (3)
  1. DEXTROSE. [Concomitant]
     Active Substance: DEXTROSE
     Indication: RESUSCITATION
     Dosage: UNK (1 L OF DEXTROSE 5% IN WATER RUNNING AT 250 ML/H)
  2. SODIUM BICARBONATE. [Suspect]
     Active Substance: SODIUM BICARBONATE
     Dosage: 150 MEQ (IN 1 L OF DEXTROSE 5% IN WATER RUNNING AT 250 ML/H)
     Route: 040
  3. SODIUM BICARBONATE. [Suspect]
     Active Substance: SODIUM BICARBONATE
     Indication: SINUS TACHYCARDIA
     Dosage: 400 MEQ (TOTAL OF 400 MEQ OF 8.4% SODIUM BICARBONATE WERE GIVEN)

REACTIONS (1)
  - Hypokalaemia [Recovered/Resolved]
